FAERS Safety Report 11295448 (Version 1)
Quarter: 2015Q3

REPORT INFORMATION
  Report Type: Spontaneous
  Country: US (occurrence: None)
  Receive Date: 20150722
  Receipt Date: 20150722
  Transmission Date: 20151125
  Serious: No
  Sender: FDA-Public Use
  Company Number: None

PATIENT
  Age: 55 Year
  Sex: Female
  Weight: 73.48 kg

DRUGS (1)
  1. HUMIRA [Suspect]
     Active Substance: ADALIMUMAB
     Indication: RHEUMATOID ARTHRITIS
     Route: 058
     Dates: start: 20150702, end: 20150710

REACTIONS (4)
  - Dyspnoea [None]
  - Rash generalised [None]
  - Rash papular [None]
  - Rash erythematous [None]

NARRATIVE: CASE EVENT DATE: 20150710
